FAERS Safety Report 25563600 (Version 2)
Quarter: 2025Q3

REPORT INFORMATION
  Report Type: Spontaneous
  Country: US (occurrence: US)
  Receive Date: 20250716
  Receipt Date: 20250728
  Transmission Date: 20251020
  Serious: No
  Sender: BOEHRINGER INGELHEIM
  Company Number: US-Komodo Health-a23aa000008tLGvAAM

PATIENT
  Age: 68 Year
  Sex: Female

DRUGS (2)
  1. SPEVIGO [Suspect]
     Active Substance: SPESOLIMAB-SBZO
     Indication: Palmoplantar pustulosis
     Dates: start: 20250311
  2. SPEVIGO [Suspect]
     Active Substance: SPESOLIMAB-SBZO

REACTIONS (3)
  - Palmoplantar pustulosis [Unknown]
  - Off label use [Unknown]
  - Condition aggravated [Unknown]
